FAERS Safety Report 18403298 (Version 14)
Quarter: 2022Q1

REPORT INFORMATION
  Report Type: Report from Study
  Country: ES (occurrence: None)
  Receive Date: 20201019
  Receipt Date: 20220121
  Transmission Date: 20220423
  Serious: Yes (Death, Life-Threatening, Hospitalization)
  Sender: FDA-Public Use
  Company Number: ES-ROCHE-2664384

PATIENT
  Age: 60 Year
  Sex: Male
  Weight: 81 kg

DRUGS (29)
  1. ATEZOLIZUMAB [Suspect]
     Active Substance: ATEZOLIZUMAB
     Indication: Small cell lung cancer extensive stage
     Dosage: THE DATE OF LAST DOSE OF ATEZOLIZUMAB (1200 MG) PRIOR TO EVENT ONSET: 17/AUG/2020 AT 10.32 HR
     Route: 041
     Dates: start: 20200817
  2. CARBOPLATIN [Suspect]
     Active Substance: CARBOPLATIN
     Indication: Small cell lung cancer extensive stage
     Dosage: THE DATE OF LAST DOSE OF CARBOPLATIN (625 MG) PRIOR TO EVENT ONSET: 17/AUG/2020 AT 12.14 HR.
     Route: 042
     Dates: start: 20200817
  3. ETOPOSIDE [Suspect]
     Active Substance: ETOPOSIDE
     Indication: Small cell lung cancer extensive stage
     Dosage: THE DATE OF LAST DOSE OF ETOPOSIDE (190 MG) PRIOR TO EVENT ONSET: 19/AUG/2020 AT 10.50 HR.
     Route: 042
     Dates: start: 20200817
  4. OMEPRAZOLE [Concomitant]
     Active Substance: OMEPRAZOLE
     Indication: Gastrooesophageal reflux disease
     Route: 048
     Dates: start: 20080505, end: 20200821
  5. OLMESARTAN [Concomitant]
     Active Substance: OLMESARTAN
     Indication: Hypertension
     Route: 048
     Dates: start: 20170823, end: 20200820
  6. AMLODIPINE [Concomitant]
     Active Substance: AMLODIPINE BESYLATE
     Indication: Hypertension
     Route: 048
     Dates: start: 20170823, end: 20200820
  7. HYDROCHLOROTHIAZIDE [Concomitant]
     Active Substance: HYDROCHLOROTHIAZIDE
     Indication: Hypertension
     Route: 048
     Dates: start: 20170823, end: 20200820
  8. ATORVASTATIN [Concomitant]
     Active Substance: ATORVASTATIN
     Indication: Peripheral ischaemia
     Route: 048
     Dates: start: 20171003, end: 20200820
  9. ASPIRIN [Concomitant]
     Active Substance: ASPIRIN
     Indication: Peripheral ischaemia
     Route: 048
     Dates: start: 20170823, end: 20200820
  10. DILTIAZEM HYDROCHLORIDE [Concomitant]
     Active Substance: DILTIAZEM HYDROCHLORIDE
     Indication: Supraventricular tachycardia
     Route: 048
     Dates: start: 20200612, end: 20200820
  11. PENTOXIFYLLINE [Concomitant]
     Active Substance: PENTOXIFYLLINE
     Indication: Peripheral ischaemia
     Route: 048
     Dates: start: 20170823, end: 20200820
  12. DEXAMETHASONE [Concomitant]
     Active Substance: DEXAMETHASONE
     Indication: Back pain
     Route: 048
     Dates: start: 20200812, end: 20200820
  13. DEXAMETHASONE [Concomitant]
     Active Substance: DEXAMETHASONE
     Route: 042
     Dates: start: 20200817, end: 20200817
  14. DEXAMETHASONE [Concomitant]
     Active Substance: DEXAMETHASONE
     Route: 042
     Dates: start: 20200818, end: 20200819
  15. DEXKETOPROFEN [Concomitant]
     Active Substance: DEXKETOPROFEN
     Indication: Back pain
     Route: 048
     Dates: start: 20200812, end: 20200820
  16. DIAZEPAM [Concomitant]
     Active Substance: DIAZEPAM
     Indication: Anxiety
     Route: 048
     Dates: start: 20200812, end: 20200820
  17. FENTANYL [Concomitant]
     Active Substance: FENTANYL
     Indication: Back pain
     Route: 062
     Dates: start: 20200813, end: 20200820
  18. MORPHINE [Concomitant]
     Active Substance: MORPHINE
     Indication: Back pain
     Route: 048
     Dates: start: 20200814, end: 20200820
  19. MORPHINE [Concomitant]
     Active Substance: MORPHINE
     Route: 042
     Dates: start: 20200821, end: 20200821
  20. METFORMIN [Concomitant]
     Active Substance: METFORMIN HYDROCHLORIDE
     Indication: Type 2 diabetes mellitus
     Route: 048
     Dates: start: 20170823, end: 20200820
  21. DOMPERIDONE [Concomitant]
     Active Substance: DOMPERIDONE
     Route: 048
     Dates: start: 20200812, end: 20200820
  22. ONDANSETRON [Concomitant]
     Active Substance: ONDANSETRON
     Route: 048
     Dates: start: 20200812, end: 20200820
  23. ONDANSETRON [Concomitant]
     Active Substance: ONDANSETRON
     Route: 042
     Dates: start: 20200817, end: 20200817
  24. RANITIDINE [Concomitant]
     Active Substance: RANITIDINE
     Route: 042
     Dates: start: 20200817, end: 20200819
  25. METOCLOPRAMIDE [Concomitant]
     Active Substance: METOCLOPRAMIDE
     Dosage: 1 AMPULE
     Route: 042
     Dates: start: 20200818, end: 20200819
  26. HALOPERIDOL [Concomitant]
     Active Substance: HALOPERIDOL
     Route: 058
     Dates: start: 20200820, end: 20200821
  27. QUETIAPINE [Concomitant]
     Active Substance: QUETIAPINE
     Route: 048
     Dates: start: 20200821, end: 20200821
  28. ENOXAPARIN [Concomitant]
     Active Substance: ENOXAPARIN
     Route: 048
     Dates: start: 20200820, end: 20200820
  29. DEXAMETHASONE [Concomitant]
     Active Substance: DEXAMETHASONE
     Indication: Back pain
     Route: 048
     Dates: start: 20200812

REACTIONS (4)
  - Sepsis [Fatal]
  - Neutrophil count decreased [Not Recovered/Not Resolved]
  - White blood cell count decreased [Not Recovered/Not Resolved]
  - Confusional state [Not Recovered/Not Resolved]

NARRATIVE: CASE EVENT DATE: 20200820
